FAERS Safety Report 11195150 (Version 1)
Quarter: 2015Q2

REPORT INFORMATION
  Report Type: Spontaneous
  Country: US (occurrence: None)
  Receive Date: 20150615
  Receipt Date: 20150615
  Transmission Date: 20150821
  Serious: Yes (Hospitalization)
  Sender: FDA-Public Use
  Company Number: None

PATIENT
  Age: 62 Year
  Sex: Male
  Weight: 107.5 kg

DRUGS (1)
  1. ATORVASTATIN 40MG WATSON [Suspect]
     Active Substance: ATORVASTATIN
     Indication: BLOOD CHOLESTEROL
     Route: 048

REACTIONS (11)
  - Myalgia [None]
  - Chest pain [None]
  - Abdominal pain upper [None]
  - Fatigue [None]
  - Decreased appetite [None]
  - Contusion [None]
  - Influenza like illness [None]
  - Haemorrhage [None]
  - Pyrexia [None]
  - Tenderness [None]
  - Asthenia [None]

NARRATIVE: CASE EVENT DATE: 20150611
